FAERS Safety Report 4376451-0 (Version None)
Quarter: 2004Q2

REPORT INFORMATION
  Report Type: 
  Country: None (occurrence: None)
  Receive Date: 20040610
  Receipt Date: 20040528
  Transmission Date: 20050107
  Serious: Yes (Hospitalization)
  Sender: FDA-Public Use
  Company Number: PANC00304001545

PATIENT
  Age: 2 Year
  Sex: Female
  Weight: 11.28 kg

DRUGS (9)
  1. CREON [Suspect]
     Indication: CYSTIC FIBROSIS
     Dosage: 4 DF DAILY PO
     Route: 048
     Dates: start: 20010801, end: 20040422
  2. UVESTEROL D [Concomitant]
  3. NONAN [Concomitant]
  4. A 313 (RENITOL) [Concomitant]
  5. VITAMINE K1 (VITAMIN K1) [Concomitant]
  6. VITAMINE E (VITAMIN E) [Concomitant]
  7. FEMAFER (FERROUS FUMARATE) [Concomitant]
  8. PULMICORT [Concomitant]
  9. COLIMYCINE 4M (COLISTIN MESILATE SODIUM) [Concomitant]

REACTIONS (1)
  - LUNG INFECTION [None]
